FAERS Safety Report 12180471 (Version 1)
Quarter: 2016Q1

REPORT INFORMATION
  Report Type: Spontaneous
  Country: US (occurrence: None)
  Receive Date: 20160314
  Receipt Date: 20160314
  Transmission Date: 20160526
  Serious: No
  Sender: FDA-Public Use
  Company Number: None

PATIENT
  Age: 49 Year
  Sex: Female
  Weight: 68.04 kg

DRUGS (2)
  1. SENSODYNE [Suspect]
     Active Substance: POTASSIUM NITRATE\SODIUM FLUORIDE
     Indication: GINGIVAL ATROPHY
     Dosage: ONCE DAILY  BRUSHED TEETH WITH AND SPAT OUT
     Dates: start: 20160301, end: 20160308
  2. SENSODYNE [Suspect]
     Active Substance: POTASSIUM NITRATE\SODIUM FLUORIDE
     Indication: TOOTH DISORDER
     Dosage: ONCE DAILY  BRUSHED TEETH WITH AND SPAT OUT
     Dates: start: 20160301, end: 20160308

REACTIONS (2)
  - Dysgeusia [None]
  - Ageusia [None]

NARRATIVE: CASE EVENT DATE: 20160301
